FAERS Safety Report 9262339 (Version 1)
Quarter: 2013Q2

REPORT INFORMATION
  Report Type: Spontaneous
  Country: GB (occurrence: GB)
  Receive Date: 20130430
  Receipt Date: 20130430
  Transmission Date: 20140414
  Serious: Yes (Hospitalization)
  Sender: FDA-Public Use
  Company Number: PHFR2013GB002347

PATIENT
  Sex: Female

DRUGS (3)
  1. CLOZARIL [Suspect]
     Indication: SCHIZOPHRENIA
     Dosage: UNK
     Route: 048
     Dates: start: 20100715
  2. CLOZARIL [Suspect]
     Dosage: 800 MG, UNK
  3. CLOZARIL [Suspect]
     Dosage: 400 MG, UNK

REACTIONS (11)
  - Back pain [Unknown]
  - Asthenia [Recovering/Resolving]
  - Hypokinesia [Unknown]
  - Drooling [Unknown]
  - Malaise [Unknown]
  - Urinary retention [Unknown]
  - Tachycardia [Not Recovered/Not Resolved]
  - Delirium [Unknown]
  - Antipsychotic drug level increased [Unknown]
  - Vomiting [Unknown]
  - Salivary hypersecretion [Recovering/Resolving]
